FAERS Safety Report 5828075-3 (Version None)
Quarter: 2008Q3

REPORT INFORMATION
  Report Type: 
  Country: None (occurrence: None)
  Receive Date: 20080730
  Receipt Date: 20070710
  Transmission Date: 20090109
  Serious: No
  Sender: FDA-Public Use
  Company Number: A0662827A

PATIENT
  Age: 4 Month
  Sex: Male

DRUGS (2)
  1. ZANTAC [Suspect]
     Dosage: .5ML FOUR TIMES PER DAY
     Route: 048
     Dates: start: 20070401
  2. PREVACID [Concomitant]

REACTIONS (1)
  - DRUG INEFFECTIVE [None]
